FAERS Safety Report 10638235 (Version 2)
Quarter: 2014Q4

REPORT INFORMATION
  Report Type: Spontaneous
  Country: DE (occurrence: DE)
  Receive Date: 20141208
  Receipt Date: 20141208
  Transmission Date: 20150529
  Serious: Yes (Other)
  Sender: FDA-Public Use
  Company Number: DE-ABBVIE-14P-062-1246472-00

PATIENT

DRUGS (1)
  1. HUMIRA [Suspect]
     Active Substance: ADALIMUMAB
     Indication: MATERNAL EXPOSURE TIMING UNSPECIFIED
     Route: 064

REACTIONS (8)
  - Foetal exposure during pregnancy [Unknown]
  - Foetal macrosomia [Recovered/Resolved]
  - Blood glucose fluctuation [Recovered/Resolved]
  - Apnoea neonatal [Recovered/Resolved]
  - Meconium in amniotic fluid [Recovered/Resolved]
  - Heart sounds abnormal [Recovered/Resolved]
  - Cyanosis neonatal [Recovered/Resolved]
  - Secretion discharge [Recovered/Resolved]

NARRATIVE: CASE EVENT DATE: 20140902
